FAERS Safety Report 19188687 (Version 1)
Quarter: 2021Q2

REPORT INFORMATION
  Report Type: Other
  Country: CA (occurrence: CA)
  Receive Date: 20210427
  Receipt Date: 20210427
  Transmission Date: 20210717
  Serious: Yes (Hospitalization, Other)
  Sender: FDA-Public Use
  Company Number: CA-CELLTRION INC.-2021CA005495

PATIENT

DRUGS (30)
  1. LEFLUNOMIDE. [Suspect]
     Active Substance: LEFLUNOMIDE
     Indication: PRODUCT USED FOR UNKNOWN INDICATION
     Route: 065
  2. BACLOFEN. [Concomitant]
     Active Substance: BACLOFEN
  3. RITUXIMAB (UNKNOWN) [Suspect]
     Active Substance: RITUXIMAB
     Indication: RHEUMATOID ARTHRITIS
     Dosage: 1000 MILLIGRAM
     Route: 042
  4. ACTEMRA [Suspect]
     Active Substance: TOCILIZUMAB
     Dosage: 800 MILLIGRAM, 1 EVERY 4 WEEKS
     Route: 042
  5. ACETAMINOPHEN/OXYCODONE HYDROCHLORIDE [Concomitant]
     Active Substance: ACETAMINOPHEN\OXYCODONE HYDROCHLORIDE
     Dosage: UNK
  6. ADVIL [Concomitant]
     Active Substance: IBUPROFEN
  7. ENALAPRIL MALEATE. [Concomitant]
     Active Substance: ENALAPRIL MALEATE
  8. LANTUS [Concomitant]
     Active Substance: INSULIN GLARGINE
  9. TIZANIDINE. [Concomitant]
     Active Substance: TIZANIDINE
  10. TYLENOL [Concomitant]
     Active Substance: ACETAMINOPHEN
     Dosage: 1000 MILLIGRAM
     Route: 048
  11. METFORMIN [Suspect]
     Active Substance: METFORMIN HYDROCHLORIDE
     Indication: PRODUCT USED FOR UNKNOWN INDICATION
     Route: 065
  12. ORENCIA [Concomitant]
     Active Substance: ABATACEPT
     Route: 042
  13. BENADRYL [Concomitant]
     Active Substance: DIPHENHYDRAMINE HYDROCHLORIDE
     Dosage: 50 MILLIGRAM
     Route: 048
  14. BUPROPION. [Concomitant]
     Active Substance: BUPROPION
  15. GLICLAZIDE [Concomitant]
     Active Substance: GLICLAZIDE
  16. PREDNISONE. [Concomitant]
     Active Substance: PREDNISONE
  17. PREGABALIN. [Concomitant]
     Active Substance: PREGABALIN
  18. PROVERA [Concomitant]
     Active Substance: MEDROXYPROGESTERONE ACETATE
  19. ACTEMRA [Suspect]
     Active Substance: TOCILIZUMAB
     Indication: RHEUMATOID ARTHRITIS
     Dosage: 480 MILLIGRAM, 1 EVERY 4 WEEKS
     Route: 042
  20. ACETAMINOPHEN/OXYCODONE HYDROCHLORIDE [Concomitant]
     Active Substance: ACETAMINOPHEN\OXYCODONE HYDROCHLORIDE
  21. FLUOXETINE [Concomitant]
     Active Substance: FLUOXETINE HYDROCHLORIDE
  22. PANTOPRAZOLE [Concomitant]
     Active Substance: PANTOPRAZOLE
  23. QUETIAPINE. [Concomitant]
     Active Substance: QUETIAPINE
  24. SERTRALINE [Concomitant]
     Active Substance: SERTRALINE HYDROCHLORIDE
  25. TYLENOL EXTRA STRENGTH [Concomitant]
     Active Substance: ACETAMINOPHEN
  26. ACTEMRA [Suspect]
     Active Substance: TOCILIZUMAB
     Indication: RHEUMATOID ARTHRITIS
     Dosage: 1000 MILLIGRAM, 1 EVERY 4 WEEKS
     Route: 042
  27. ENALAPRIL [Concomitant]
     Active Substance: ENALAPRIL
  28. RABEPRAZOLE [Concomitant]
     Active Substance: RABEPRAZOLE
  29. ROSUVASTATIN CALCIUM. [Concomitant]
     Active Substance: ROSUVASTATIN CALCIUM
  30. OXAZEPAM. [Concomitant]
     Active Substance: OXAZEPAM

REACTIONS (26)
  - Weight decreased [Not Recovered/Not Resolved]
  - Blood pressure fluctuation [Not Recovered/Not Resolved]
  - Pain [Not Recovered/Not Resolved]
  - Sleep disorder [Not Recovered/Not Resolved]
  - Tooth repair [Not Recovered/Not Resolved]
  - Anxiety [Not Recovered/Not Resolved]
  - Fatigue [Not Recovered/Not Resolved]
  - Impaired healing [Not Recovered/Not Resolved]
  - Headache [Not Recovered/Not Resolved]
  - Blood pressure diastolic abnormal [Not Recovered/Not Resolved]
  - Fall [Not Recovered/Not Resolved]
  - Insomnia [Not Recovered/Not Resolved]
  - Stress [Not Recovered/Not Resolved]
  - Drug ineffective [Not Recovered/Not Resolved]
  - Blood pressure diastolic decreased [Not Recovered/Not Resolved]
  - Cartilage injury [Not Recovered/Not Resolved]
  - Hip fracture [Not Recovered/Not Resolved]
  - Joint instability [Not Recovered/Not Resolved]
  - Diarrhoea [Not Recovered/Not Resolved]
  - Myalgia [Not Recovered/Not Resolved]
  - Joint swelling [Not Recovered/Not Resolved]
  - Arthralgia [Not Recovered/Not Resolved]
  - Sciatica [Not Recovered/Not Resolved]
  - Animal scratch [Not Recovered/Not Resolved]
  - Rheumatoid arthritis [Not Recovered/Not Resolved]
  - Hypotension [Not Recovered/Not Resolved]
